FAERS Safety Report 7065046-6 (Version None)
Quarter: 2010Q4

REPORT INFORMATION
  Report Type: 
  Country: None (occurrence: None)
  Receive Date: 20101027
  Receipt Date: 20101019
  Transmission Date: 20110411
  Serious: Yes (Other)
  Sender: FDA-Public Use
  Company Number: FR-SANOFI-AVENTIS-2010SA063866

PATIENT
  Age: 68 Year
  Sex: Female
  Weight: 64 kg

DRUGS (3)
  1. TAXOTERE [Suspect]
     Indication: BREAST CANCER
     Route: 042
     Dates: start: 20100730, end: 20100820
  2. TAXOTERE [Suspect]
     Route: 042
     Dates: start: 20100730, end: 20100820
  3. CORTICOSTEROIDS [Concomitant]
     Indication: PREMEDICATION

REACTIONS (2)
  - ANGINA PECTORIS [None]
  - PERICARDITIS [None]
